FAERS Safety Report 12176098 (Version 1)
Quarter: 2016Q1

REPORT INFORMATION
  Report Type: Spontaneous
  Country: JP (occurrence: JP)
  Receive Date: 20160314
  Receipt Date: 20160314
  Transmission Date: 20160526
  Serious: Yes (Other)
  Sender: FDA-Public Use
  Company Number: JP-BEXIMCO-2016BEX00005

PATIENT
  Age: 13 Month
  Sex: Female

DRUGS (14)
  1. CARVEDILOL. [Suspect]
     Active Substance: CARVEDILOL
     Dosage: 0.47 MG/KG, 1X/DAY
     Route: 065
  2. CARVEDILOL. [Suspect]
     Active Substance: CARVEDILOL
     Dosage: 0.02 MG/KG, 1X/DAY
     Route: 065
  3. CARVEDILOL. [Suspect]
     Active Substance: CARVEDILOL
     Dosage: 0.09 MG/KG, 1X/DAY
     Route: 065
  4. PIMOBENDAN [Concomitant]
     Active Substance: PIMOBENDAN
     Dosage: 0.01 MG/KG, UNK
     Route: 048
  5. DIGOXIN. [Concomitant]
     Active Substance: DIGOXIN
     Dosage: 0.01 MG/KG, UNK
     Route: 048
  6. DOBUTAMINE [Concomitant]
     Active Substance: DOBUTAMINE\DOBUTAMINE HYDROCHLORIDE
  7. CARVEDILOL. [Suspect]
     Active Substance: CARVEDILOL
     Indication: CARDIAC FAILURE
     Dosage: 0.06 MG/KG, 1X/DAY
     Route: 065
  8. FUROSEMIDE. [Concomitant]
     Active Substance: FUROSEMIDE
     Dosage: 3 MG/KG, UNK
     Route: 048
  9. SPIRONOLACTONE. [Concomitant]
     Active Substance: SPIRONOLACTONE
     Dosage: 3 MG/KG, UNK
     Route: 048
  10. ENALAPRIL [Concomitant]
     Active Substance: ENALAPRIL
     Dosage: 0.1 MG/KG, UNK
  11. HUMAN ATRIAL NATRIURETIC PEPTIDE [Concomitant]
  12. SPIRONOLACTONE. [Concomitant]
     Active Substance: SPIRONOLACTONE
     Dosage: 2 UNK, UNK
     Route: 048
  13. PHOSPHODIESTERASE INHIBITOR III [Concomitant]
  14. FUROSEMIDE. [Concomitant]
     Active Substance: FUROSEMIDE
     Dosage: 2 MG/KG, UNK
     Route: 048

REACTIONS (4)
  - Shock [Recovered/Resolved]
  - Cardiac failure [Recovering/Resolving]
  - Cerebral infarction [Unknown]
  - Mechanical ventilation [Recovered/Resolved]
